FAERS Safety Report 21872270 (Version 1)
Quarter: 2023Q1

REPORT INFORMATION
  Report Type: Spontaneous
  Country: RU (occurrence: RU)
  Receive Date: 20230117
  Receipt Date: 20230117
  Transmission Date: 20230418
  Serious: Yes (Disabling)
  Sender: FDA-Public Use
  Company Number: RU-ANIPHARMA-2023-RU-000002

PATIENT
  Sex: 0

DRUGS (1)
  1. ARIMIDEX [Suspect]
     Active Substance: ANASTROZOLE
     Indication: Product used for unknown indication
     Route: 048

REACTIONS (4)
  - Muscle atrophy [Unknown]
  - Pain [Unknown]
  - Joint destruction [Unknown]
  - Resorption bone increased [Unknown]
